FAERS Safety Report 5573554-X (Version None)
Quarter: 2007Q4

REPORT INFORMATION
  Report Type: 
  Country: None (occurrence: None)
  Receive Date: 20071220
  Receipt Date: 20071220
  Transmission Date: 20080405
  Serious: Yes (Disabling)
  Sender: FDA-Public Use
  Company Number: None

PATIENT
  Age: 69 Year
  Sex: Male

DRUGS (1)
  1. AMIKACIN [Suspect]
     Dosage: 700MG  OTHER IV
     Route: 042
     Dates: start: 20070326, end: 20071023

REACTIONS (1)
  - DEAFNESS [None]
